FAERS Safety Report 7118050-3 (Version None)
Quarter: 2010Q4

REPORT INFORMATION
  Report Type: 
  Country: None (occurrence: None)
  Receive Date: 20101118
  Receipt Date: 20101118
  Transmission Date: 20110411
  Serious: Yes (Other)
  Sender: FDA-Public Use
  Company Number: None

PATIENT
  Sex: Male
  Weight: 156.491 kg

DRUGS (2)
  1. DIOVAN HCT [Suspect]
     Indication: HYPERTENSION
     Dosage: 1 TABLET 1X PER DAY PO
     Route: 048
  2. CARVEDILOL [Suspect]
     Indication: FLUID RETENTION
     Dosage: 1 TABLET 2X PER DAY PO
     Route: 048

REACTIONS (1)
  - OEDEMA PERIPHERAL [None]
